FAERS Safety Report 7127066-2 (Version None)
Quarter: 2010Q4

REPORT INFORMATION
  Report Type: 
  Country: None (occurrence: None)
  Receive Date: 20101129
  Receipt Date: 20100223
  Transmission Date: 20110411
  Serious: Yes (Other)
  Sender: FDA-Public Use
  Company Number: US-PFIZER INC-2010023911

PATIENT
  Sex: Male

DRUGS (1)
  1. VIAGRA [Suspect]
     Dosage: 50 MG, UNK
     Route: 048

REACTIONS (4)
  - DYSPNOEA [None]
  - MEDICATION ERROR [None]
  - PALPITATIONS [None]
  - TREMOR [None]
